FAERS Safety Report 15700410 (Version 3)
Quarter: 2019Q1

REPORT INFORMATION
  Report Type: Report from Study
  Country: BR (occurrence: BR)
  Receive Date: 20181207
  Receipt Date: 20190121
  Transmission Date: 20190417
  Serious: Yes (Other)
  Sender: FDA-Public Use
  Company Number: PHHY2018BR177262

PATIENT
  Age: 92 Year
  Sex: Male
  Weight: 60 kg

DRUGS (2)
  1. DONEPEZIL TORRENT [Suspect]
     Active Substance: DONEPEZIL HYDROCHLORIDE
     Indication: DEMENTIA ALZHEIMER^S TYPE
     Dosage: 1 DF, QD
     Route: 065
     Dates: start: 2016
  2. EXELON PATCH [Suspect]
     Active Substance: RIVASTIGMINE
     Indication: CONFUSIONAL STATE
     Dosage: 4.6 MG, QD PATCH 5 (CM2) (IT MUST BE A MONTH OR SO)
     Route: 062

REACTIONS (7)
  - Product use in unapproved indication [Unknown]
  - Confusional state [Recovered/Resolved with Sequelae]
  - Drug intolerance [Unknown]
  - Neurodegenerative disorder [Not Recovered/Not Resolved]
  - Insomnia [Recovered/Resolved with Sequelae]
  - Condition aggravated [Recovered/Resolved with Sequelae]
  - Agitation [Recovered/Resolved with Sequelae]

NARRATIVE: CASE EVENT DATE: 201607
